FAERS Safety Report 9792802 (Version 7)
Quarter: 2015Q2

REPORT INFORMATION
  Report Type: Report from Study
  Country: US (occurrence: US)
  Receive Date: 20140102
  Receipt Date: 20150615
  Transmission Date: 20150821
  Serious: Yes (Other)
  Sender: FDA-Public Use
  Company Number: US-SA-2013SA113874

PATIENT
  Age: 51 Year
  Sex: Female

DRUGS (4)
  1. ACTHAR [Concomitant]
     Active Substance: CORTICOTROPIN
  2. VITAMIN D [Concomitant]
     Active Substance: CHOLECALCIFEROL
  3. AUBAGIO [Suspect]
     Active Substance: TERIFLUNOMIDE
     Indication: MULTIPLE SCLEROSIS
     Route: 048
     Dates: start: 20130525
  4. OPANA [Concomitant]
     Active Substance: OXYMORPHONE HYDROCHLORIDE

REACTIONS (33)
  - Neck pain [Unknown]
  - Dysstasia [Unknown]
  - Diarrhoea [Unknown]
  - Cystitis [Unknown]
  - Walking aid user [Unknown]
  - Somnolence [Unknown]
  - Wheezing [Unknown]
  - Gastrooesophageal reflux disease [Unknown]
  - Depression [Unknown]
  - Pain in extremity [Unknown]
  - Pain [Unknown]
  - Seizure [Unknown]
  - Arthralgia [Unknown]
  - Joint effusion [Unknown]
  - Influenza [Recovered/Resolved]
  - Nasopharyngitis [Recovered/Resolved]
  - Intervertebral disc protrusion [Unknown]
  - Swelling [Unknown]
  - Sleep disorder [Unknown]
  - Alopecia [Recovering/Resolving]
  - Exostosis [Unknown]
  - Hyperhidrosis [Unknown]
  - Muscular weakness [Unknown]
  - Headache [Recovered/Resolved]
  - Urine abnormality [Unknown]
  - Chills [Unknown]
  - Sneezing [Unknown]
  - Psychiatric symptom [Unknown]
  - Weight decreased [Unknown]
  - Multiple sclerosis relapse [Unknown]
  - Central nervous system lesion [Unknown]
  - Abscess [Unknown]
  - Back pain [Unknown]

NARRATIVE: CASE EVENT DATE: 2013
